FAERS Safety Report 8812789 (Version 1)
Quarter: 2012Q4

REPORT INFORMATION
  Report Type: 
  Country: PH (occurrence: PH)
  Receive Date: 20120927
  Receipt Date: 20120927
  Transmission Date: 20130627
  Serious: Yes (Hospitalization)
  Sender: FDA-Public Use
  Company Number: PH-009507513-1209PHL003113

PATIENT
  Age: 68 Year
  Sex: Female

DRUGS (4)
  1. JANUVIA [Suspect]
     Dosage: 100 mg, once qd
     Route: 048
     Dates: start: 20110922, end: 20120905
  2. COUMADIN [Concomitant]
     Indication: CARDIAC FAILURE
     Dosage: UNK
  3. CRESTOR [Concomitant]
     Dosage: 10 mg, qd
     Dates: start: 20120830
  4. THYRAX [Concomitant]
     Dosage: half tablet

REACTIONS (2)
  - Coronary artery bypass [Unknown]
  - Pruritus [Unknown]
